FAERS Safety Report 9554966 (Version 1)
Quarter: 2013Q3

REPORT INFORMATION
  Report Type: Report from Study
  Country: AR (occurrence: AR)
  Receive Date: 20130926
  Receipt Date: 20130926
  Transmission Date: 20140515
  Serious: Yes (Other)
  Sender: FDA-Public Use
  Company Number: AR-ROCHE-1280913

PATIENT
  Sex: Male

DRUGS (1)
  1. LUCENTIS [Suspect]
     Indication: DIABETIC RETINOPATHY
     Dosage: 02 AMPOULES IN EACH EYE
     Route: 050
     Dates: start: 2012

REACTIONS (3)
  - Fall [Recovering/Resolving]
  - Cerumen impaction [Recovered/Resolved]
  - Hand fracture [Recovering/Resolving]
